FAERS Safety Report 19215358 (Version 2)
Quarter: 2021Q2

REPORT INFORMATION
  Report Type: Spontaneous
  Country: JP (occurrence: JP)
  Receive Date: 20210504
  Receipt Date: 20210525
  Transmission Date: 20210717
  Serious: Yes (Other)
  Sender: FDA-Public Use
  Company Number: NVSJ2021JP006671

PATIENT
  Age: 50 Year
  Sex: Female

DRUGS (1)
  1. IMUSERA [Suspect]
     Active Substance: FINGOLIMOD HYDROCHLORIDE
     Indication: PRODUCT USED FOR UNKNOWN INDICATION
     Dosage: UNK
     Route: 065

REACTIONS (3)
  - Secondary progressive multiple sclerosis [Unknown]
  - Urinary retention [Unknown]
  - Monoplegia [Unknown]
